FAERS Safety Report 8954869 (Version 1)
Quarter: 2012Q4

REPORT INFORMATION
  Report Type: 
  Country: JP (occurrence: JP)
  Receive Date: 20121207
  Receipt Date: 20121207
  Transmission Date: 20130627
  Serious: Yes (Other)
  Sender: FDA-Public Use
  Company Number: CHNY2012JP000679

PATIENT
  Age: 78 Year
  Sex: Female

DRUGS (5)
  1. VOLTAREN GEL [Suspect]
     Dosage: Large amount
     Route: 061
  2. LOXONIN [Suspect]
     Dosage: 20 tapes daily
     Route: 061
  3. PERSANTIN [Concomitant]
     Route: 048
  4. SARPOGRELATE HCL [Concomitant]
     Route: 048
  5. ALENDRONATE [Concomitant]
     Indication: OSTEOPOROSIS

REACTIONS (1)
  - Renal disorder [Recovered/Resolved]
